APPROVED DRUG PRODUCT: CEFAZOLIN AND DEXTROSE
Active Ingredient: CEFAZOLIN SODIUM
Strength: EQ 2GM BASE/VIAL
Dosage Form/Route: INJECTABLE;INJECTION
Application: N050779 | Product #003
Applicant: B BRAUN MEDICAL INC
Approved: Jan 13, 2012 | RLD: Yes | RS: No | Type: RX